FAERS Safety Report 9696392 (Version 8)
Quarter: 2014Q2

REPORT INFORMATION
  Report Type: Spontaneous
  Country: GB (occurrence: None)
  Receive Date: 20131115
  Receipt Date: 20140411
  Transmission Date: 20141212
  Serious: Yes (Hospitalization, Disabling)
  Sender: FDA-Public Use
  Company Number: 2013GB002817

PATIENT
  Age: 67 Year
  Sex: Male
  Weight: 63.7 kg

DRUGS (8)
  1. PONATINIB [Suspect]
     Indication: CHRONIC MYELOID LEUKAEMIA
     Route: 048
     Dates: start: 20110531, end: 20131102
  2. OMEPRAZOLE [Concomitant]
  3. CHOLECALCIFEROL [Concomitant]
  4. SIMVASTATIN [Concomitant]
  5. CETIRIZINE [Concomitant]
  6. AMLODIPINE [Concomitant]
  7. NIFEDIPINE [Concomitant]
  8. ASPIRIN [Concomitant]

REACTIONS (14)
  - Myotonia [None]
  - Hemiparesis [None]
  - Peripheral vascular disorder [None]
  - Peripheral artery stenosis [None]
  - Vertebral osteophyte [None]
  - Condition aggravated [None]
  - Peripheral artery stenosis [None]
  - Vertebral foraminal stenosis [None]
  - Carotid artery occlusion [None]
  - Ischaemic cerebral infarction [None]
  - Aortic aneurysm [None]
  - Thrombosis [None]
  - Cerebral infarction [None]
  - Peripheral artery stenosis [None]
